FAERS Safety Report 21601129 (Version 1)
Quarter: 2022Q4

REPORT INFORMATION
  Report Type: Spontaneous
  Country: TR (occurrence: TR)
  Receive Date: 20221116
  Receipt Date: 20221116
  Transmission Date: 20230113
  Serious: Yes (Other)
  Sender: FDA-Public Use
  Company Number: TR-SUN PHARMACEUTICAL INDUSTRIES LTD-2022R1-363889

PATIENT
  Age: 49 Year
  Sex: Female

DRUGS (5)
  1. METHYLPREDNISOLONE [Suspect]
     Active Substance: METHYLPREDNISOLONE
     Indication: Upper respiratory tract infection
     Dosage: UNK
     Route: 065
  2. HYDROXYCHLOROQUINE [Suspect]
     Active Substance: HYDROXYCHLOROQUINE
     Indication: Upper respiratory tract infection
     Dosage: UNK
     Route: 065
  3. CYCLOSPORINE [Suspect]
     Active Substance: CYCLOSPORINE
     Indication: Upper respiratory tract infection
     Dosage: UNK
     Route: 065
  4. MENTHOL [Suspect]
     Active Substance: MENTHOL
     Indication: Upper respiratory tract infection
     Route: 065
  5. CALAMINE [Suspect]
     Active Substance: CALAMINE\FERRIC OXIDE RED\ZINC OXIDE
     Indication: Upper respiratory tract infection
     Dosage: UNK
     Route: 065

REACTIONS (1)
  - Treatment failure [Unknown]
